FAERS Safety Report 9186256 (Version 1)
Quarter: 2013Q1

REPORT INFORMATION
  Report Type: Spontaneous
  Country: GB (occurrence: GB)
  Receive Date: 20130325
  Receipt Date: 20130325
  Transmission Date: 20140127
  Serious: Yes (Other)
  Sender: FDA-Public Use
  Company Number: GB-GLAXOSMITHKLINE-B0874086A

PATIENT
  Age: 42 Year
  Sex: 0

DRUGS (1)
  1. AVANDIA [Suspect]
     Indication: PRODUCT USED FOR UNKNOWN INDICATION
     Route: 065

REACTIONS (12)
  - Angina pectoris [Unknown]
  - Cardiac failure [Unknown]
  - Disability [Unknown]
  - Life expectancy shortened [Unknown]
  - Injury [Unknown]
  - Quality of life decreased [Unknown]
  - Cardiac disorder [Unknown]
  - General physical health deterioration [Unknown]
  - Dyspnoea [Unknown]
  - Red blood cell count decreased [Unknown]
  - Local swelling [Unknown]
  - Joint swelling [Unknown]
